FAERS Safety Report 5045321-7 (Version None)
Quarter: 2006Q3

REPORT INFORMATION
  Report Type: 
  Country: None (occurrence: None)
  Receive Date: 20060707
  Receipt Date: 20060628
  Transmission Date: 20061208
  Serious: Yes (Death, Hospitalization)
  Sender: FDA-Public Use
  Company Number: US-AVENTIS-200616785GDDC

PATIENT
  Age: 50 Year
  Sex: Male
  Weight: 61.7 kg

DRUGS (6)
  1. TAXOTERE [Suspect]
     Indication: ADENOCARCINOMA
     Route: 042
     Dates: start: 20060622, end: 20060622
  2. ANTINEOPLASTIC AND IMMUNOSUPPRESSIVE AGENTS [Suspect]
     Indication: ADENOCARCINOMA
     Route: 048
     Dates: start: 20060615, end: 20060625
  3. DURAGESIC-100 [Concomitant]
     Dosage: DOSE: UNK
     Route: 062
  4. DECADRON [Concomitant]
     Dosage: DOSE: UNK
  5. SYNTHROID [Concomitant]
  6. ZOFRAN [Concomitant]
     Dosage: DOSE: UNK

REACTIONS (14)
  - ACTIVATED PARTIAL THROMBOPLASTIN TIME PROLONGED [None]
  - ANAEMIA [None]
  - BLOOD CREATININE INCREASED [None]
  - BLOOD UREA INCREASED [None]
  - CARDIAC ARREST [None]
  - DIARRHOEA [None]
  - HYPOTENSION [None]
  - HYPOVOLAEMIA [None]
  - NAUSEA [None]
  - NEUTROPENIA [None]
  - PANCYTOPENIA [None]
  - PROTHROMBIN TIME PROLONGED [None]
  - SEPSIS [None]
  - VOMITING [None]
